FAERS Safety Report 19386406 (Version 2)
Quarter: 2021Q3

REPORT INFORMATION
  Report Type: Report from Study
  Country: CA (occurrence: CA)
  Receive Date: 20210608
  Receipt Date: 20210907
  Transmission Date: 20211014
  Serious: Yes (Other)
  Sender: FDA-Public Use
  Company Number: CA-BRISTOL-MYERS SQUIBB COMPANY-BMS-2021-054352

PATIENT
  Age: 71 Year
  Sex: Female

DRUGS (1)
  1. ABATACEPT [Suspect]
     Active Substance: ABATACEPT
     Indication: RHEUMATOID ARTHRITIS
     Dosage: 1000 MILLIGRAM, Q4WK
     Route: 042
     Dates: start: 20140403

REACTIONS (5)
  - Road traffic accident [Unknown]
  - Fall [Unknown]
  - Skin laceration [Recovering/Resolving]
  - Vertigo [Unknown]
  - Ulna fracture [Unknown]

NARRATIVE: CASE EVENT DATE: 20210516
